FAERS Safety Report 13514544 (Version 2)
Quarter: 2017Q2

REPORT INFORMATION
  Report Type: Report from Study
  Country: US (occurrence: US)
  Receive Date: 20170504
  Receipt Date: 20170616
  Transmission Date: 20170830
  Serious: Yes (Other)
  Sender: FDA-Public Use
  Company Number: US-ENDO PHARMACEUTICALS INC-2017-002673

PATIENT
  Sex: Male
  Weight: 85.26 kg

DRUGS (5)
  1. XIAFLEX [Suspect]
     Active Substance: COLLAGENASE CLOSTRIDIUM HISTOLYTICUM
     Indication: PEYRONIE^S DISEASE
     Dosage: 0.58 MG, SINGLE
     Route: 026
     Dates: start: 201702, end: 201702
  2. LIPITOR [Concomitant]
     Active Substance: ATORVASTATIN CALCIUM
     Indication: PRODUCT USED FOR UNKNOWN INDICATION
     Dosage: 40 MG, DAILY
     Route: 065
  3. TYLENOL [Concomitant]
     Active Substance: ACETAMINOPHEN
     Indication: PAIN
     Dosage: 500 MG, THREE TABLETS EVERY SIX HOURS PRN
     Route: 048
  4. IBUPROFEN CAPLETS 200MG [Concomitant]
     Indication: PAIN
     Dosage: 200 MG, THREE TABLETS EVERY SIX HOURS PRN
     Route: 048
  5. VITAMIN D                          /00107901/ [Concomitant]
     Active Substance: ERGOCALCIFEROL
     Indication: PRODUCT USED FOR UNKNOWN INDICATION
     Dosage: 1500 UNITS, WEEKLY
     Route: 048

REACTIONS (8)
  - Injection site plaque [Not Recovered/Not Resolved]
  - Painful erection [Not Recovered/Not Resolved]
  - Wrong technique in product usage process [Recovered/Resolved]
  - Dyspareunia [Not Recovered/Not Resolved]
  - Drug dose omission [Recovered/Resolved]
  - Penile pain [Not Recovered/Not Resolved]
  - Erectile dysfunction [Not Recovered/Not Resolved]
  - Injection site pain [Unknown]

NARRATIVE: CASE EVENT DATE: 2017
